FAERS Safety Report 4866060-9 (Version None)
Quarter: 2005Q4

REPORT INFORMATION
  Report Type: 
  Country: None (occurrence: None)
  Receive Date: 20051221
  Receipt Date: 20051205
  Transmission Date: 20060501
  Serious: Yes (Hospitalization)
  Sender: FDA-Public Use
  Company Number: 2005002322

PATIENT
  Age: 66 Year
  Sex: Female
  Weight: 42.1845 kg

DRUGS (10)
  1. TARCEVA [Suspect]
     Indication: NON-SMALL CELL LUNG CANCER
     Dosage: 150 MG (QD), ORAL
     Route: 048
     Dates: start: 20050901, end: 20051115
  2. PROTONIX [Concomitant]
  3. PERCOCET [Concomitant]
  4. MAGNESIUM OXIDE (MAGNESIUM OXIDE) [Concomitant]
  5. VANCOMYCIN [Concomitant]
  6. QUESTRAN [Concomitant]
  7. POTASSIUM (POTASSIUM) [Concomitant]
  8. PHOSPHORUS (PHOSPHORUS) [Concomitant]
  9. CLONAZEPAM [Concomitant]
  10. INSULIN [Concomitant]

REACTIONS (3)
  - CONDITION AGGRAVATED [None]
  - NON-SMALL CELL LUNG CANCER [None]
  - THROMBOCYTOPENIA [None]
